FAERS Safety Report 8164131-5 (Version None)
Quarter: 2012Q1

REPORT INFORMATION
  Report Type: 
  Country: None (occurrence: None)
  Receive Date: 20120224
  Receipt Date: 20120222
  Transmission Date: 20120608
  Serious: Yes (Other)
  Sender: FDA-Public Use
  Company Number: CHPA2012US003481

PATIENT
  Sex: Female

DRUGS (3)
  1. DRUG THERAPY NOS [Concomitant]
  2. PREVACID 24 HR [Suspect]
     Indication: GASTROOESOPHAGEAL REFLUX DISEASE
     Dosage: 30 MG, QD
     Route: 048
  3. PREVACID 24 HR [Suspect]
     Route: 048

REACTIONS (6)
  - DISEASE RECURRENCE [None]
  - INCORRECT DRUG ADMINISTRATION DURATION [None]
  - TREATMENT NONCOMPLIANCE [None]
  - OFF LABEL USE [None]
  - NEOPLASM MALIGNANT [None]
  - OVERDOSE [None]
